FAERS Safety Report 8053218-3 (Version None)
Quarter: 2012Q1

REPORT INFORMATION
  Report Type: 
  Country: None (occurrence: None)
  Receive Date: 20120118
  Receipt Date: 20120104
  Transmission Date: 20120608
  Serious: Yes (Other)
  Sender: FDA-Public Use
  Company Number: GB-WATSON-2012-00090

PATIENT
  Age: 82 Year
  Sex: Male
  Weight: 57.5 kg

DRUGS (7)
  1. IRON SULFATETHIAMIN COMPOUND TAB [Concomitant]
     Indication: IRON DEFICIENCY ANAEMIA
     Dosage: 200 MG, DAILY
     Route: 048
  2. LANSOPRAZOLE [Concomitant]
     Indication: BARRETT'S OESOPHAGUS
     Dosage: 30 MG, UNK
     Route: 048
     Dates: start: 20090101
  3. AMLODIPINE [Concomitant]
     Indication: HYPERTENSION
     Dosage: 10 MG, UNK
     Route: 048
     Dates: start: 20080101
  4. RAMIPRIL [Suspect]
     Indication: MICROALBUMINURIA
  5. ATORVASTATIN [Concomitant]
     Indication: HYPERCHOLESTEROLAEMIA
     Dosage: 10 MG, UNK
     Route: 048
     Dates: start: 20070101
  6. RAMIPRIL [Suspect]
     Indication: HYPERTENSION
     Dosage: 1.25 MG, UNK
     Route: 048
     Dates: start: 20111116, end: 20111207
  7. ATENOLOL [Concomitant]
     Indication: HYPERTENSION
     Dosage: 100 MG, UNK
     Route: 048
     Dates: start: 20070101

REACTIONS (2)
  - SKIN NECROSIS [None]
  - VASCULITIC RASH [None]
